FAERS Safety Report 8214122-0 (Version None)
Quarter: 2012Q1

REPORT INFORMATION
  Report Type: 
  Country: None (occurrence: None)
  Receive Date: 20120316
  Receipt Date: 20120305
  Transmission Date: 20120608
  Serious: Yes (Life-Threatening, Hospitalization)
  Sender: FDA-Public Use
  Company Number: GB-JNJFOC-20111204913

PATIENT
  Sex: Male
  Weight: 30 kg

DRUGS (12)
  1. CIPROFLOXACIN [Concomitant]
  2. POTASSIUM PENICILLIN G [Concomitant]
  3. PIPERACILLIN AND TAZOBACTAM [Concomitant]
  4. VANCOMYCIN [Concomitant]
  5. METRONIDAZOLE [Concomitant]
  6. GENTAMICIN [Concomitant]
  7. AMOXICILLIN [Concomitant]
  8. INFLIXIMAB, RECOMBINANT [Suspect]
     Indication: INFLAMMATORY BOWEL DISEASE
     Route: 042
     Dates: start: 20100219, end: 20100317
  9. PIPERACILLIN [Concomitant]
  10. MORPHINE [Concomitant]
  11. PREDNISOLONE [Concomitant]
  12. ACETAMINOPHEN [Concomitant]

REACTIONS (3)
  - PNEUMOTHORAX [None]
  - POSTOPERATIVE WOUND INFECTION [None]
  - ACUTE RESPIRATORY DISTRESS SYNDROME [None]
